FAERS Safety Report 7979768-3 (Version None)
Quarter: 2011Q4

REPORT INFORMATION
  Report Type: 
  Country: None (occurrence: None)
  Receive Date: 20111214
  Receipt Date: 20111202
  Transmission Date: 20120403
  Serious: Yes (Hospitalization)
  Sender: FDA-Public Use
  Company Number: DE-ROCHE-1018763

PATIENT
  Age: 68 Year
  Sex: Female
  Weight: 76 kg

DRUGS (4)
  1. COTRIM DS [Concomitant]
     Dates: start: 20100313
  2. CALCIDOL [Concomitant]
     Dosage: DOSE 400 CA 500
     Dates: start: 20100329
  3. AMLODIPINE [Concomitant]
  4. ACTEMRA [Suspect]
     Indication: RHEUMATOID ARTHRITIS
     Dosage: DATE OF LAST DOSE PRIOR TO SAE: 3/NOV/2011
     Route: 042
     Dates: start: 20110512, end: 20111201

REACTIONS (1)
  - WOUND [None]
